FAERS Safety Report 17992231 (Version 2)
Quarter: 2020Q3

REPORT INFORMATION
  Report Type: Spontaneous
  Country: CN (occurrence: CN)
  Receive Date: 20200708
  Receipt Date: 20200715
  Transmission Date: 20201103
  Serious: Yes (Other)
  Sender: FDA-Public Use
  Company Number: CN-ASTRAZENECA-2020SE84545

PATIENT
  Age: 18112 Day
  Sex: Female
  Weight: 51 kg

DRUGS (2)
  1. AMINOPEPTIN [Concomitant]
     Indication: PLATELET COUNT ABNORMAL
     Dosage: 5 PIECES TID
     Route: 048
  2. LYNPARZA [Suspect]
     Active Substance: OLAPARIB
     Indication: OVARIAN CANCER RECURRENT
     Route: 048
     Dates: start: 20200629

REACTIONS (5)
  - Pruritus [Recovered/Resolved]
  - Anaphylactic reaction [Recovered/Resolved]
  - Erythema [Recovered/Resolved]
  - Hypersensitivity [Recovered/Resolved]
  - Rash [Recovered/Resolved]

NARRATIVE: CASE EVENT DATE: 20200629
